FAERS Safety Report 6595539-7 (Version None)
Quarter: 2010Q1

REPORT INFORMATION
  Report Type: 
  Country: None (occurrence: None)
  Receive Date: 20100223
  Receipt Date: 20100105
  Transmission Date: 20100710
  Serious: Yes (Death)
  Sender: FDA-Public Use
  Company Number: US-TYCO HEALTHCARE/MALLINCKRODT-T201000185

PATIENT
  Age: 27 Year

DRUGS (4)
  1. MORPHINE [Suspect]
     Dosage: UNK
  2. CLONAZEPAM [Suspect]
     Dosage: UNK
  3. PROPOXYPHENE HCL [Suspect]
     Dosage: UNK
  4. MARIJUANA [Suspect]
     Dosage: UNK

REACTIONS (1)
  - CARDIO-RESPIRATORY ARREST [None]
